FAERS Safety Report 6749077-9 (Version None)
Quarter: 2010Q2

REPORT INFORMATION
  Report Type: 
  Country: None (occurrence: None)
  Receive Date: 20100527
  Receipt Date: 20100527
  Transmission Date: 20101027
  Serious: Yes (Other)
  Sender: FDA-Public Use
  Company Number: None

PATIENT
  Age: 45 Year
  Sex: Female
  Weight: 99.7913 kg

DRUGS (3)
  1. KEFLEX [Suspect]
     Indication: LYMPHADENOPATHY
     Dosage: 500 MG 2 TIMES A DAY MOUTH
     Route: 048
     Dates: start: 20091124, end: 20091203
  2. ZESTRIL [Concomitant]
  3. LISINOPRIL [Concomitant]

REACTIONS (9)
  - ABDOMINAL PAIN [None]
  - ASTHENIA [None]
  - BEDRIDDEN [None]
  - BLOOD PRESSURE FLUCTUATION [None]
  - CHEST PAIN [None]
  - DIARRHOEA [None]
  - FATIGUE [None]
  - HEART RATE DECREASED [None]
  - HEART RATE INCREASED [None]
